FAERS Safety Report 18373838 (Version 1)
Quarter: 2020Q4

REPORT INFORMATION
  Report Type: Spontaneous
  Country: US (occurrence: US)
  Receive Date: 20201013
  Receipt Date: 20201013
  Transmission Date: 20210114
  Serious: Yes (Hospitalization)
  Sender: FDA-Public Use
  Company Number: US-CELLTRION INC.-2019US025291

PATIENT

DRUGS (2)
  1. INFLIXIMAB (UNKNOWN) [Suspect]
     Active Substance: INFLIXIMAB
     Indication: CROHN^S DISEASE
     Dosage: UNK
     Dates: start: 201908
  2. INFLIXIMAB (UNKNOWN) [Suspect]
     Active Substance: INFLIXIMAB
     Indication: COLITIS

REACTIONS (12)
  - Chronic obstructive pulmonary disease [Unknown]
  - Weight decreased [Unknown]
  - Aphasia [Unknown]
  - Hypertension [Unknown]
  - Peripheral swelling [Unknown]
  - Vein disorder [Unknown]
  - Psoriasis [Unknown]
  - Dizziness [Unknown]
  - Drug hypersensitivity [Unknown]
  - Cerebrovascular accident [Unknown]
  - Bone pain [Unknown]
  - Vomiting [Unknown]
